FAERS Safety Report 5351171-4 (Version None)
Quarter: 2007Q2

REPORT INFORMATION
  Report Type: 
  Country: None (occurrence: None)
  Receive Date: 20070608
  Receipt Date: 20070608
  Transmission Date: 20071010
  Serious: Yes (Hospitalization)
  Sender: FDA-Public Use
  Company Number: US-BRISTOL-MYERS SQUIBB COMPANY-13633383

PATIENT
  Age: 43 Year
  Sex: Female
  Weight: 94 kg

DRUGS (7)
  1. ERBITUX [Suspect]
     Indication: BREAST CANCER
     Route: 042
     Dates: start: 20061221, end: 20061221
  2. CARBOPLATIN [Suspect]
     Indication: BREAST CANCER
     Route: 042
     Dates: start: 20061207, end: 20061207
  3. IRINOTECAN HCL [Suspect]
     Indication: BREAST CANCER
     Route: 042
     Dates: start: 20061214, end: 20061214
  4. VICODIN [Concomitant]
     Indication: CHEST PAIN
     Route: 048
     Dates: start: 20060301
  5. ARANESP [Concomitant]
     Indication: ANAEMIA
     Route: 058
     Dates: start: 20060427
  6. COMPAZINE [Concomitant]
     Indication: NAUSEA
     Route: 048
     Dates: start: 20061207
  7. CIPRO [Concomitant]
     Indication: SKIN ULCER
     Route: 048
     Dates: start: 20061208

REACTIONS (2)
  - SEPSIS [None]
  - SKIN ULCER [None]
